FAERS Safety Report 7842382-4 (Version None)
Quarter: 2011Q4

REPORT INFORMATION
  Report Type: 
  Country: None (occurrence: None)
  Receive Date: 20111025
  Receipt Date: 20111019
  Transmission Date: 20120403
  Serious: Yes (Other)
  Sender: FDA-Public Use
  Company Number: US-SANOFI-AVENTIS-2011SA063852

PATIENT
  Age: 82 Year
  Sex: Female
  Weight: 73.18 kg

DRUGS (7)
  1. LEXAPRO [Suspect]
     Route: 065
  2. XANAX [Concomitant]
  3. METOPROLOL TARTRATE [Concomitant]
  4. ASPIRIN [Concomitant]
  5. ACIPHEX [Concomitant]
  6. DABIGATRAN ETEXILATE [Concomitant]
  7. MULTAQ [Suspect]
     Route: 048
     Dates: start: 20101223, end: 20110927

REACTIONS (3)
  - ELECTROCARDIOGRAM QT PROLONGED [None]
  - VENTRICULAR TACHYCARDIA [None]
  - BUNDLE BRANCH BLOCK LEFT [None]
